FAERS Safety Report 9206087 (Version 2)
Quarter: 2013Q4

REPORT INFORMATION
  Report Type: Spontaneous
  Country: CA (occurrence: US)
  Receive Date: 20130403
  Receipt Date: 20131226
  Transmission Date: 20140711
  Serious: Yes (Hospitalization, Disabling, Other)
  Sender: FDA-Public Use
  Company Number: CA-BAYER-2013-040016

PATIENT
  Age: 28 Year
  Sex: Female

DRUGS (3)
  1. YASMIN [Suspect]
  2. OCELLA [Suspect]
  3. YAZ [Suspect]

REACTIONS (8)
  - Gallbladder disorder [None]
  - Gallbladder abscess [None]
  - Injury [None]
  - Pain [None]
  - Deformity [None]
  - Anxiety [None]
  - Anhedonia [None]
  - Cholelithiasis [None]
